FAERS Safety Report 7248621-5 (Version None)
Quarter: 2011Q1

REPORT INFORMATION
  Report Type: 
  Country: None (occurrence: None)
  Receive Date: 20110128
  Receipt Date: 20101206
  Transmission Date: 20110831
  Serious: Yes (Other)
  Sender: FDA-Public Use
  Company Number: US-BAYER-2010-004328

PATIENT
  Sex: Female
  Weight: 56.689 kg

DRUGS (10)
  1. TYLENOL (CAPLET) [Concomitant]
     Dosage: 1300 MG, QD
  2. CALCIUM-D3 [Concomitant]
     Dosage: DAILY DOSE 1200 MG
  3. MESTINON [Concomitant]
  4. GLUCOSAMINE SULFATE [Concomitant]
  5. LOVAZA [Concomitant]
  6. ALEVE (CAPLET) [Suspect]
     Dosage: 220 MG, QD
     Dates: start: 20100901
  7. PREMPRO [Concomitant]
  8. ALENDRONATE SODIUM [Concomitant]
  9. ONE-A-DAY WEIGHT SMART ADVANCED [Suspect]
     Indication: VITAMIN SUPPLEMENTATION
     Dosage: UNK
     Dates: end: 20100901
  10. ONE A DAY WOMEN'S ACTIVE METABOLISM [Suspect]
     Indication: VITAMIN SUPPLEMENTATION
     Dosage: UNK
     Dates: start: 20100901

REACTIONS (6)
  - LIMB DISCOMFORT [None]
  - NAUSEA [None]
  - BURNING SENSATION [None]
  - RESTLESSNESS [None]
  - WEIGHT INCREASED [None]
  - MUSCLE SPASMS [None]
